FAERS Safety Report 12321657 (Version 1)
Quarter: 2016Q2

REPORT INFORMATION
  Report Type: Report from Study
  Country: US (occurrence: US)
  Receive Date: 20160502
  Receipt Date: 20160502
  Transmission Date: 20160815
  Serious: Yes (Life-Threatening, Hospitalization)
  Sender: FDA-Public Use
  Company Number: US-ROCHE-1717029

PATIENT
  Age: 54 Year
  Sex: Female
  Weight: 101 kg

DRUGS (5)
  1. EPIPEN [Concomitant]
     Active Substance: EPINEPHRINE
  2. ROCEPHIN [Suspect]
     Active Substance: CEFTRIAXONE SODIUM
     Indication: EAR INFECTION
     Route: 065
     Dates: start: 200401, end: 200401
  3. XOLAIR [Suspect]
     Active Substance: OMALIZUMAB
     Indication: HYPERSENSITIVITY
     Route: 058
  4. ROCEPHIN [Suspect]
     Active Substance: CEFTRIAXONE SODIUM
     Indication: MASTOIDITIS
     Dosage: MONTH LONG INJECTIONS
     Route: 065
     Dates: start: 2003
  5. XOLAIR [Suspect]
     Active Substance: OMALIZUMAB
     Indication: ASTHMA
     Route: 058

REACTIONS (9)
  - Rash [Recovered/Resolved]
  - Hepatitis acute [Recovered/Resolved]
  - Urticaria [Unknown]
  - Abdominal pain [Recovered/Resolved]
  - Drug hypersensitivity [Unknown]
  - Hepatic failure [Recovered/Resolved]
  - Pancreatitis [Recovered/Resolved]
  - Drug dose omission [Unknown]
  - Hepatitis acute [Unknown]

NARRATIVE: CASE EVENT DATE: 200312
